FAERS Safety Report 10727933 (Version 2)
Quarter: 2015Q1

REPORT INFORMATION
  Report Type: Spontaneous
  Country: US (occurrence: US)
  Receive Date: 20150121
  Receipt Date: 20150204
  Transmission Date: 20150721
  Serious: Yes (Other)
  Sender: FDA-Public Use
  Company Number: ALCN2015US000718

PATIENT
  Age: 56 Year
  Sex: Female

DRUGS (3)
  1. MOXIFLOXACIN [Concomitant]
     Active Substance: MOXIFLOXACIN
     Indication: POSTOPERATIVE CARE
     Dosage: 1 GTT, QID
     Route: 047
  2. NEPAFENAC [Suspect]
     Active Substance: NEPAFENAC
     Indication: POSTOPERATIVE CARE
     Dosage: 1 GTT, TID
     Route: 047
  3. PREDNISOLONE ACETATE. [Concomitant]
     Active Substance: PREDNISOLONE ACETATE
     Indication: POSTOPERATIVE CARE
     Dosage: 1 GTT, QD
     Route: 047

REACTIONS (2)
  - Ulcerative keratitis [Unknown]
  - Corneal perforation [Unknown]
